FAERS Safety Report 16437273 (Version 2)
Quarter: 2019Q2

REPORT INFORMATION
  Report Type: Report from Study
  Country: FR (occurrence: FR)
  Receive Date: 20190615
  Receipt Date: 20190626
  Transmission Date: 20190711
  Serious: Yes (Hospitalization)
  Sender: FDA-Public Use
  Company Number: FR-ROCHE-2336578

PATIENT
  Age: 45 Year
  Sex: Female

DRUGS (4)
  1. 5 FU [Suspect]
     Active Substance: FLUOROURACIL
     Indication: ANAL CANCER
     Dosage: DATE OF MOST RECENT DOSE PRIOR TO SAE: 13/MAY/2019?(8 CYCLES OF 5 FU DAY 1 FOR 2 DAYS)
     Route: 065
     Dates: start: 20190401
  2. DOCETAXEL. [Suspect]
     Active Substance: DOCETAXEL
     Indication: ANAL CANCER
     Dosage: DATE OF MOST RECENT DOSE PRIOR TO SAE: 29/APR/2019?(8 CYCLES OF DOCETAXELDAY 1 FOR 2 DAYS)
     Route: 065
     Dates: start: 20190401
  3. ATEZOLIZUMAB. [Suspect]
     Active Substance: ATEZOLIZUMAB
     Indication: ANAL CANCER
     Dosage: DATE OF MOST RECENT DOSE PRIOR TO SAE: 13/MAY/2019
     Route: 042
     Dates: start: 20190401
  4. CISPLATIN. [Suspect]
     Active Substance: CISPLATIN
     Indication: ANAL CANCER
     Dosage: DATE OF MOST RECENT DOSE PRIOR TO SAE: 13/MAY/2019?(8 CYCLES OF CISPLATIN DAY 1 FOR 2 DAYS)
     Route: 065
     Dates: start: 20190401

REACTIONS (1)
  - Intestinal obstruction [Recovered/Resolved]

NARRATIVE: CASE EVENT DATE: 20190527
